FAERS Safety Report 13736036 (Version 1)
Quarter: 2017Q3

REPORT INFORMATION
  Report Type: Spontaneous
  Country: US (occurrence: US)
  Receive Date: 20170707
  Receipt Date: 20170707
  Transmission Date: 20171127
  Serious: No
  Sender: FDA-Public Use
  Company Number: None

PATIENT
  Age: 53 Year
  Sex: Male

DRUGS (1)
  1. IMATINIB MESYLATE 400MG SUN PHARMA GLOBAL FZE [Suspect]
     Active Substance: IMATINIB MESYLATE
     Route: 048
     Dates: start: 20160706

REACTIONS (1)
  - Eye pruritus [None]

NARRATIVE: CASE EVENT DATE: 20170701
